FAERS Safety Report 23930742 (Version 3)
Quarter: 2024Q2

REPORT INFORMATION
  Report Type: Spontaneous
  Country: DE (occurrence: DE)
  Receive Date: 20240603
  Receipt Date: 20240626
  Transmission Date: 20240715
  Serious: Yes (Life-Threatening, Hospitalization)
  Sender: FDA-Public Use
  Company Number: DE-AMAROX PHARMA-AMR2024DE01514

PATIENT
  Age: 66 Year
  Sex: Female

DRUGS (12)
  1. PREGABALIN [Suspect]
     Active Substance: PREGABALIN
     Indication: Polyneuropathy
     Dosage: 75 MILLIGRAM, QD (DOSE REDUCED)
     Route: 065
     Dates: start: 20231206, end: 20231216
  2. PREGABALIN [Suspect]
     Active Substance: PREGABALIN
     Indication: Palpitations
     Dosage: UNK (25 MG IN THE MORNING, 75 MG IN THE EVENING)
     Route: 065
     Dates: start: 20240131
  3. PREGABALIN [Suspect]
     Active Substance: PREGABALIN
     Indication: Restlessness
     Dosage: UNK
     Route: 065
     Dates: start: 20240207, end: 20240505
  4. PREGABALIN [Suspect]
     Active Substance: PREGABALIN
     Indication: Tension
     Dosage: UNK
     Route: 065
  5. PREGABALIN [Suspect]
     Active Substance: PREGABALIN
     Indication: Tremor
  6. PREGABALIN [Suspect]
     Active Substance: PREGABALIN
     Indication: Product used for unknown indication
     Dosage: 75 MILLIGRAM, BID
     Route: 065
     Dates: start: 20230930
  7. PREGABALIN [Suspect]
     Active Substance: PREGABALIN
     Indication: Product used for unknown indication
     Dosage: 75 MILLIGRAM, BID
     Route: 065
     Dates: start: 20231024
  8. RAMIPRIL [Concomitant]
     Active Substance: RAMIPRIL
     Indication: Blood pressure measurement
     Dosage: 2.5 UNK
     Route: 065
  9. THYRONAJOD 50 HENNING [Concomitant]
     Indication: Hypothyroidism
     Route: 065
  10. DOXYCYCLINE [Concomitant]
     Active Substance: DOXYCYCLINE\DOXYCYCLINE HYCLATE
     Indication: Lyme disease
     Dosage: UNK
     Route: 065
     Dates: start: 2023
  11. ESCITALOPRAM [Concomitant]
     Active Substance: ESCITALOPRAM OXALATE
     Indication: Antidepressant therapy
     Dosage: UNK
     Route: 065
     Dates: start: 20240203
  12. CANDESARTAN [Concomitant]
     Active Substance: CANDESARTAN
     Indication: Product used for unknown indication
     Dosage: UNK
     Route: 065

REACTIONS (30)
  - Cyanosis [Recovering/Resolving]
  - Contusion [Recovering/Resolving]
  - General physical health deterioration [Recovering/Resolving]
  - Tension [Recovering/Resolving]
  - Palpitations [Recovering/Resolving]
  - Haematoma [Recovering/Resolving]
  - Injury [Recovering/Resolving]
  - Erythema [Recovering/Resolving]
  - Chest wall mass [Recovering/Resolving]
  - Somatic symptom disorder [Recovering/Resolving]
  - Respiratory rate increased [Recovering/Resolving]
  - Seizure [Recovering/Resolving]
  - Condition aggravated [Recovering/Resolving]
  - Syncope [Recovering/Resolving]
  - Restlessness [Recovering/Resolving]
  - Hypokinesia [Recovering/Resolving]
  - Muscle spasms [Recovering/Resolving]
  - Lacrimation increased [Recovering/Resolving]
  - Musculoskeletal stiffness [Recovering/Resolving]
  - Neck pain [Not Recovered/Not Resolved]
  - Peripheral swelling [Recovering/Resolving]
  - Pain [Recovering/Resolving]
  - Tremor [Recovering/Resolving]
  - Dizziness [Recovering/Resolving]
  - Asthenia [Recovering/Resolving]
  - Depression [Recovering/Resolving]
  - Feeling abnormal [Recovering/Resolving]
  - Withdrawal syndrome [Unknown]
  - Drug ineffective [Unknown]
  - Product use in unapproved indication [Unknown]

NARRATIVE: CASE EVENT DATE: 20230930
